FAERS Safety Report 5486532-6 (Version None)
Quarter: 2007Q3

REPORT INFORMATION
  Report Type: 
  Country: None (occurrence: None)
  Receive Date: 20070919
  Receipt Date: 20070612
  Transmission Date: 20080115
  Serious: No
  Sender: FDA-Public Use
  Company Number: 2007RL000271

PATIENT
  Age: 67 Year
  Sex: Female
  Weight: 89.8122 kg

DRUGS (5)
  1. OMACOR [Suspect]
     Indication: BLOOD TRIGLYCERIDES INCREASED
     Dosage: 4GM;QD;PO
     Route: 048
     Dates: start: 20070501
  2. DICLOFENAC SODIUM [Concomitant]
  3. SYNTHROID [Concomitant]
  4. OMEPRAZOLE [Concomitant]
  5. DARVOCET /00220901/ [Concomitant]

REACTIONS (1)
  - BLOOD CHOLESTEROL INCREASED [None]
